FAERS Safety Report 16157271 (Version 3)
Quarter: 2019Q2

REPORT INFORMATION
  Report Type: Spontaneous
  Country: US (occurrence: US)
  Receive Date: 20190404
  Receipt Date: 20190614
  Transmission Date: 20190711
  Serious: Yes (Other)
  Sender: FDA-Public Use
  Company Number: US-PFIZER INC-2019138842

PATIENT
  Age: 72 Year
  Sex: Female

DRUGS (5)
  1. ENABLEX [Concomitant]
     Active Substance: DARIFENACIN HYDROBROMIDE
     Dosage: 4 MG, DAILY
  2. DETROL LA [Suspect]
     Active Substance: TOLTERODINE TARTRATE
     Indication: PAIN
     Dosage: 4 MG, 2X/DAY
  3. DONEPEZIL. [Concomitant]
     Active Substance: DONEPEZIL
     Dosage: 4 MG, DAILY
  4. DETROL LA [Suspect]
     Active Substance: TOLTERODINE TARTRATE
     Dosage: 4 MG, 1X/DAY
  5. TOLTERODINE TARTRATE. [Concomitant]
     Active Substance: TOLTERODINE TARTRATE
     Dosage: 4 MG, 2X/DAY

REACTIONS (3)
  - Dry mouth [Unknown]
  - Pain in extremity [Recovered/Resolved]
  - Spinal fracture [Unknown]
